FAERS Safety Report 19051977 (Version 2)
Quarter: 2021Q2

REPORT INFORMATION
  Report Type: Spontaneous
  Country: US (occurrence: US)
  Receive Date: 20210324
  Receipt Date: 20210413
  Transmission Date: 20210717
  Serious: No
  Sender: FDA-Public Use
  Company Number: US-ELI_LILLY_AND_COMPANY-US202103011667

PATIENT
  Sex: Female

DRUGS (6)
  1. EMGALITY [Suspect]
     Active Substance: GALCANEZUMAB-GNLM
     Indication: MIGRAINE
     Dosage: 120 MG AS LOADING DOSE
     Route: 058
  2. FEVERFEW [TANACETUM PARTHENIUM LEAF] [Concomitant]
     Indication: MIGRAINE
     Dosage: UNK, UNKNOWN
     Route: 065
  3. SUMATRIPTAN. [Concomitant]
     Active Substance: SUMATRIPTAN
     Indication: MIGRAINE
     Dosage: UNK, UNKNOWN
     Route: 065
  4. AMITRIPTYLINE [Concomitant]
     Active Substance: AMITRIPTYLINE
     Indication: MIGRAINE
     Dosage: UNK, UNKNOWN
     Route: 065
  5. TOPAMAX [Concomitant]
     Active Substance: TOPIRAMATE
     Indication: MIGRAINE
     Dosage: UNK, UNKNOWN
     Route: 065
  6. EMGALITY [Suspect]
     Active Substance: GALCANEZUMAB-GNLM
     Dosage: 120 MG AS LOADING DOSE (8 DAYS LATER)
     Route: 058

REACTIONS (3)
  - Blister [Unknown]
  - Varicella [Unknown]
  - Inappropriate schedule of product administration [Unknown]
